FAERS Safety Report 11939647 (Version 1)
Quarter: 2016Q1

REPORT INFORMATION
  Report Type: Spontaneous
  Country: FR (occurrence: FR)
  Receive Date: 20160122
  Receipt Date: 20160122
  Transmission Date: 20160526
  Serious: Yes (Hospitalization, Other)
  Sender: FDA-Public Use
  Company Number: FR-ELI_LILLY_AND_COMPANY-FR201511009221

PATIENT
  Age: 62 Year
  Sex: Male
  Weight: 73 kg

DRUGS (2)
  1. ZYPADHERA [Suspect]
     Active Substance: OLANZAPINE PAMOATE
     Indication: PSYCHOTIC DISORDER
     Dosage: UNK, UNKNOWN
     Route: 030
     Dates: start: 20100701
  2. ZYPADHERA [Suspect]
     Active Substance: OLANZAPINE PAMOATE
     Dosage: 300 MG, MONTHLY (1/M)
     Route: 030
     Dates: start: 20100911, end: 20151125

REACTIONS (6)
  - Confusional state [Recovering/Resolving]
  - Somnolence [Unknown]
  - Anxiety [Unknown]
  - Apnoea [Recovering/Resolving]
  - Agitation [Recovering/Resolving]
  - Disturbance in attention [Recovering/Resolving]

NARRATIVE: CASE EVENT DATE: 20151125
